FAERS Safety Report 4725899-0 (Version None)
Quarter: 2005Q3

REPORT INFORMATION
  Report Type: 
  Country: None (occurrence: None)
  Receive Date: 20050726
  Receipt Date: 20050726
  Transmission Date: 20060218
  Serious: No
  Sender: FDA-Public Use
  Company Number: None

PATIENT
  Sex: Female
  Weight: 65.79 kg

DRUGS (1)
  1. VANCOMYCIN [Suspect]
     Indication: OSTEOMYELITIS ACUTE
     Dosage: 750MG   EVERY 12 HOURS   INTRAVENOU
     Route: 042
     Dates: start: 20050708, end: 20050722

REACTIONS (3)
  - AURICULAR SWELLING [None]
  - ERYTHEMA [None]
  - RASH GENERALISED [None]
